FAERS Safety Report 8990095 (Version 3)
Quarter: 2013Q1

REPORT INFORMATION
  Report Type: Spontaneous
  Country: US (occurrence: US)
  Receive Date: 20121228
  Receipt Date: 20130208
  Transmission Date: 20140127
  Serious: Yes (Hospitalization, Other)
  Sender: FDA-Public Use
  Company Number: US-BAXTER-2012BAX028856

PATIENT
  Age: 68 Year
  Sex: Female

DRUGS (2)
  1. DIANEAL LOW CALCIUM [Suspect]
     Indication: PERITONEAL DIALYSIS
     Dosage: 2400 CC FOR EACH OF 3 CYCLES
     Route: 033
     Dates: start: 20110620
  2. DIANEAL LOW CALCIUM (ULTRABAG) [Suspect]
     Indication: PERITONEAL DIALYSIS
     Route: 033
     Dates: start: 20110620

REACTIONS (4)
  - Cellulitis [Recovering/Resolving]
  - Hypoparathyroidism [Recovering/Resolving]
  - Type 2 diabetes mellitus [Recovering/Resolving]
  - Cerebrovascular accident [Recovered/Resolved with Sequelae]
